FAERS Safety Report 5946106-7 (Version None)
Quarter: 2008Q4

REPORT INFORMATION
  Report Type: 
  Country: None (occurrence: None)
  Receive Date: 20081110
  Receipt Date: 20081028
  Transmission Date: 20090506
  Serious: Yes (Hospitalization, Other)
  Sender: FDA-Public Use
  Company Number: US-ROCHE-552270

PATIENT
  Sex: Male
  Weight: 68 kg

DRUGS (4)
  1. ACCUTANE [Suspect]
     Route: 048
     Dates: start: 20041020, end: 20050119
  2. ACCUTANE [Suspect]
     Route: 048
     Dates: start: 20050120, end: 20050619
  3. AMNESTEEM [Concomitant]
     Dosage: DISPENSED AMNESTEEM 40 MG ON 20OCT2004 + 18NOV2004
  4. SOTRET [Concomitant]
     Dosage: DISPENSED SOTRET 40 MG ON 19NOV04, 24JAN05, 05APR05 + 20MAY05

REACTIONS (7)
  - COLITIS ULCERATIVE [None]
  - CYTOMEGALOVIRUS COLITIS [None]
  - DEPRESSION [None]
  - DRY SKIN [None]
  - HEPATIC ENZYME INCREASED [None]
  - INFLAMMATORY BOWEL DISEASE [None]
  - IRON DEFICIENCY ANAEMIA [None]
